FAERS Safety Report 4560598-X (Version None)
Quarter: 2005Q1

REPORT INFORMATION
  Report Type: 
  Country: None (occurrence: None)
  Receive Date: 20050125
  Receipt Date: 20041213
  Transmission Date: 20050727
  Serious: Yes (Other)
  Sender: FDA-Public Use
  Company Number: US-MERCK-0412USA01570

PATIENT
  Age: 87 Year
  Sex: Female

DRUGS (9)
  1. FOSAMAX [Suspect]
     Route: 048
     Dates: start: 20010101
  2. FOSAMAX [Suspect]
     Route: 048
     Dates: start: 20041124, end: 20041201
  3. LASIX [Concomitant]
     Route: 065
  4. DITROPAN [Concomitant]
     Route: 065
  5. TOPROL-XL [Concomitant]
     Route: 065
  6. NITRO-DUR [Concomitant]
     Route: 065
  7. ZOLOFT [Concomitant]
     Route: 065
  8. LESCOL [Concomitant]
     Route: 065
  9. PRINIVIL [Concomitant]
     Route: 048

REACTIONS (4)
  - ACCIDENTAL OVERDOSE [None]
  - CONFUSIONAL STATE [None]
  - MYOCARDIAL INFARCTION [None]
  - SYNCOPE [None]
